FAERS Safety Report 12889463 (Version 1)
Quarter: 2016Q4

REPORT INFORMATION
  Report Type: Spontaneous
  Country: US (occurrence: US)
  Receive Date: 20161027
  Receipt Date: 20161027
  Transmission Date: 20170207
  Serious: Yes (Other)
  Sender: FDA-Public Use
  Company Number: US-BAYER-2016-205520

PATIENT
  Sex: Female

DRUGS (2)
  1. CIPRO [Suspect]
     Active Substance: CIPROFLOXACIN HYDROCHLORIDE
     Indication: URINARY TRACT INFECTION
  2. CIPRO [Suspect]
     Active Substance: CIPROFLOXACIN HYDROCHLORIDE
     Indication: KIDNEY INFECTION

REACTIONS (13)
  - Feeling abnormal [None]
  - Dyskinesia [None]
  - Muscle spasms [None]
  - Insomnia [None]
  - Pruritus [None]
  - Hyperhidrosis [None]
  - Abdominal discomfort [None]
  - Burning sensation [None]
  - Paraesthesia [None]
  - Diarrhoea [None]
  - Headache [None]
  - Flushing [None]
  - Back pain [None]
